FAERS Safety Report 6251098-X (Version None)
Quarter: 2009Q2

REPORT INFORMATION
  Report Type: 
  Country: None (occurrence: None)
  Receive Date: 20090630
  Receipt Date: 20090624
  Transmission Date: 20091009
  Serious: No
  Sender: FDA-Public Use
  Company Number: US-B.I. PHARMACEUTICALS,INC./RIDGEFIELD-2009-BP-07199BP

PATIENT
  Age: 24 Year
  Sex: Female
  Weight: 76.66 kg

DRUGS (4)
  1. MIRAPEX [Suspect]
     Indication: RESTLESS LEGS SYNDROME
     Route: 048
     Dates: start: 20090423
  2. NORTRIPTYLINE HCL [Concomitant]
     Dosage: 50 MG
     Dates: start: 20090423
  3. ZYPREXA [Concomitant]
     Dosage: 10 MG
     Dates: start: 20090423
  4. XANAX [Concomitant]
     Dosage: 1 MG
     Dates: start: 20090423

REACTIONS (1)
  - HALLUCINATION, AUDITORY [None]
